FAERS Safety Report 5255280-X (Version None)
Quarter: 2007Q1

REPORT INFORMATION
  Report Type: 
  Country: None (occurrence: None)
  Receive Date: 20070305
  Receipt Date: 20070222
  Transmission Date: 20070707
  Serious: Yes (Hospitalization)
  Sender: FDA-Public Use
  Company Number: US-SANOFI-SYNTHELABO-F03200700048

PATIENT
  Sex: Female
  Weight: 76.7 kg

DRUGS (6)
  1. PRAVASTATIN [Concomitant]
     Dosage: UNK
     Route: 048
  2. NORVASC [Concomitant]
     Dosage: UNK
     Route: 048
  3. GEMCITABINE [Suspect]
     Indication: PANCREATIC CARCINOMA
     Route: 042
     Dates: start: 20070219, end: 20070219
  4. CETUXIMAB [Suspect]
     Indication: PANCREATIC CARCINOMA
     Route: 042
     Dates: start: 20070219, end: 20070219
  5. OXALIPLATIN [Suspect]
     Indication: PANCREATIC CARCINOMA
     Route: 042
     Dates: start: 20070219, end: 20070219
  6. FOSAMAX [Concomitant]
     Dosage: UNK
     Route: 048

REACTIONS (1)
  - CEREBROVASCULAR ACCIDENT [None]
